FAERS Safety Report 23649250 (Version 1)
Quarter: 2024Q1

REPORT INFORMATION
  Report Type: Spontaneous
  Country: KR (occurrence: KR)
  Receive Date: 20240319
  Receipt Date: 20240319
  Transmission Date: 20240410
  Serious: Yes (Other)
  Sender: FDA-Public Use
  Company Number: KR-ABBVIE-5667538

PATIENT
  Age: 53 Year
  Sex: Female
  Weight: 47 kg

DRUGS (2)
  1. BOTULINUM TOXIN TYPE A [Suspect]
     Active Substance: BOTULINUM TOXIN TYPE A
     Indication: Dysphagia
     Dosage: TIME INTERVAL: AS NECESSARY
     Route: 030
  2. BOTULINUM TOXIN TYPE A [Suspect]
     Active Substance: BOTULINUM TOXIN TYPE A
     Indication: Dysphagia
     Dosage: TIME INTERVAL: AS NECESSARY
     Route: 030

REACTIONS (3)
  - Muscle rigidity [Recovered/Resolved]
  - Off label use [Unknown]
  - Joint stiffness [Recovered/Resolved]
